FAERS Safety Report 23777875 (Version 1)
Quarter: 2024Q2

REPORT INFORMATION
  Report Type: Spontaneous
  Country: US (occurrence: US)
  Receive Date: 20240424
  Receipt Date: 20240424
  Transmission Date: 20240716
  Serious: No
  Sender: FDA-Public Use
  Company Number: US-009507513-2404USA000633

PATIENT
  Sex: Male

DRUGS (1)
  1. STROMECTOL [Suspect]
     Active Substance: IVERMECTIN
     Dosage: 9 TABLETS BY MOUTH ON DAY 1 AND DAY 7 OF EXPOSURE
     Route: 048

REACTIONS (1)
  - Product use in unapproved indication [Unknown]
